FAERS Safety Report 8134854-2 (Version None)
Quarter: 2012Q1

REPORT INFORMATION
  Report Type: 
  Country: None (occurrence: None)
  Receive Date: 20120214
  Receipt Date: 20120207
  Transmission Date: 20120608
  Serious: Yes (Hospitalization, Other)
  Sender: FDA-Public Use
  Company Number: BE-TEVA-314831ISR

PATIENT
  Age: 70 Year
  Sex: Male

DRUGS (3)
  1. MOXIFLOXACIN [Suspect]
  2. HALOPERIDOL [Suspect]
  3. SOTALOL HCL [Suspect]

REACTIONS (4)
  - ELECTROCARDIOGRAM T WAVE INVERSION [None]
  - LOSS OF CONSCIOUSNESS [None]
  - RESPIRATORY TRACT INFECTION [None]
  - VENTRICULAR TACHYCARDIA [None]
